FAERS Safety Report 18635327 (Version 1)
Quarter: 2020Q4

REPORT INFORMATION
  Report Type: Report from Study
  Country: US (occurrence: US)
  Receive Date: 20201218
  Receipt Date: 20201218
  Transmission Date: 20210114
  Serious: No
  Sender: FDA-Public Use
  Company Number: US-REGENERON PHARMACEUTICALS, INC.-2020-25158

PATIENT

DRUGS (7)
  1. TRADJENTA [Concomitant]
     Active Substance: LINAGLIPTIN
     Indication: PRODUCT USED FOR UNKNOWN INDICATION
     Dosage: UNK
  2. ANASTROZOLE. [Concomitant]
     Active Substance: ANASTROZOLE
     Indication: BREAST CANCER
     Dosage: UNK
  3. INSULIN [Concomitant]
     Active Substance: INSULIN NOS
     Indication: PRODUCT USED FOR UNKNOWN INDICATION
     Dosage: UNK
  4. FENOFIBRATE. [Concomitant]
     Active Substance: FENOFIBRATE
     Indication: PRODUCT USED FOR UNKNOWN INDICATION
     Dosage: UNK
  5. EYLEA [Suspect]
     Active Substance: AFLIBERCEPT
     Indication: DIABETIC RETINOPATHY
     Dosage: UNK, LEFT EYE, FIRST EYLEA INJECTION
     Route: 031
     Dates: start: 20200212, end: 20200212
  6. EYLEA [Suspect]
     Active Substance: AFLIBERCEPT
     Dosage: UNK, LEFT EYE, SECOND EYLEA INJECTION
     Route: 031
     Dates: start: 20200311, end: 20200311
  7. ATORVASTATIN [Concomitant]
     Active Substance: ATORVASTATIN
     Indication: PRODUCT USED FOR UNKNOWN INDICATION
     Dosage: UNK

REACTIONS (4)
  - Eye swelling [Recovered/Resolved]
  - Eye discharge [Recovered/Resolved]
  - Foreign body sensation in eyes [Recovered/Resolved]
  - Lacrimation increased [Recovered/Resolved]

NARRATIVE: CASE EVENT DATE: 20200212
